FAERS Safety Report 25335000 (Version 1)
Quarter: 2025Q2

REPORT INFORMATION
  Report Type: Report from Study
  Country: US (occurrence: US)
  Receive Date: 20250520
  Receipt Date: 20250520
  Transmission Date: 20250717
  Serious: Yes (Other)
  Sender: ACADIA PHARMACEUTICALS
  Company Number: US-ACADIA PHARMACEUTICALS INC.-ACA-2025-PIM-005850

PATIENT
  Sex: Male

DRUGS (2)
  1. NUPLAZID [Suspect]
     Active Substance: PIMAVANSERIN TARTRATE
     Indication: Parkinsonism
     Dosage: 10 MILLIGRAM, QD (EVERY EVENING OR EVERY NIGHT)
     Route: 048
     Dates: start: 20250423
  2. NUPLAZID [Suspect]
     Active Substance: PIMAVANSERIN TARTRATE
     Indication: Hallucination

REACTIONS (5)
  - Hallucination [Unknown]
  - Lip swelling [Unknown]
  - Screaming [Unknown]
  - Moaning [Unknown]
  - Somnolence [Unknown]
